FAERS Safety Report 9966989 (Version 4)
Quarter: 2014Q2

REPORT INFORMATION
  Report Type: Report from Study
  Country: BE (occurrence: BE)
  Receive Date: 20140305
  Receipt Date: 20140417
  Transmission Date: 20141212
  Serious: Yes (Death)
  Sender: FDA-Public Use
  Company Number: BE-US-EMD SERONO, INC.-7273107

PATIENT
  Age: 61 Year
  Sex: Male

DRUGS (4)
  1. REBIF [Suspect]
     Indication: MULTIPLE SCLEROSIS
     Dates: start: 20130909, end: 20140221
  2. LIPANTIL [Concomitant]
     Indication: BLOOD CHOLESTEROL INCREASED
  3. DEANXIT                            /00428501/ [Concomitant]
     Indication: PRODUCT USED FOR UNKNOWN INDICATION
  4. GLUCOPHAGE                         /00082701/ [Concomitant]
     Indication: DIABETES MELLITUS

REACTIONS (2)
  - Myocardial infarction [Fatal]
  - Arrhythmia [Fatal]
